FAERS Safety Report 21930010 (Version 1)
Quarter: 2023Q1

REPORT INFORMATION
  Report Type: Spontaneous
  Country: PK (occurrence: PK)
  Receive Date: 20230131
  Receipt Date: 20230131
  Transmission Date: 20230418
  Serious: Yes (Death, Other)
  Sender: FDA-Public Use
  Company Number: PK-STERISCIENCE B.V.-2023-ST-000376

PATIENT
  Age: 3 Month
  Sex: Female

DRUGS (8)
  1. PIPERACILLIN SODIUM\TAZOBACTAM SODIUM [Suspect]
     Active Substance: PIPERACILLIN SODIUM\TAZOBACTAM SODIUM
     Indication: COVID-19 pneumonia
     Dosage: 400 MILLIGRAM, 8 HOURLY INJECTION
     Route: 065
  2. PIPERACILLIN SODIUM\TAZOBACTAM SODIUM [Suspect]
     Active Substance: PIPERACILLIN SODIUM\TAZOBACTAM SODIUM
     Indication: Pneumonia
  3. REMDESIVIR [Suspect]
     Active Substance: REMDESIVIR
     Indication: COVID-19 pneumonia
     Dosage: 25 MILLIGRAM STAT INJECTION
     Route: 042
  4. REMDESIVIR [Suspect]
     Active Substance: REMDESIVIR
     Indication: Pneumonia
     Dosage: 12.5 MILLIGRAM, DAILY
     Route: 042
  5. DEXAMETHASONE [Suspect]
     Active Substance: DEXAMETHASONE
     Indication: COVID-19 pneumonia
     Dosage: 0.8 MILLIGRAM, 8 HOURLY INJECTION
     Route: 042
  6. DEXAMETHASONE [Suspect]
     Active Substance: DEXAMETHASONE
     Indication: Pneumonia
  7. AMIKACIN [Suspect]
     Active Substance: AMIKACIN
     Indication: COVID-19 pneumonia
     Dosage: 30 MILLIGRAM, INJECTION TWICE A DAY
     Route: 065
  8. AMIKACIN [Suspect]
     Active Substance: AMIKACIN
     Indication: Pneumonia

REACTIONS (1)
  - Drug ineffective for unapproved indication [Fatal]
